FAERS Safety Report 4494243-9 (Version None)
Quarter: 2004Q4

REPORT INFORMATION
  Report Type: 
  Country: None (occurrence: None)
  Receive Date: 20041102
  Receipt Date: 20041020
  Transmission Date: 20050328
  Serious: Yes (Hospitalization)
  Sender: FDA-Public Use
  Company Number: A02200403138

PATIENT
  Age: 78 Year
  Sex: Female

DRUGS (4)
  1. STILNOX - (ZOLPIDEM) [Suspect]
     Indication: SLEEP DISORDER
     Dosage: 10 MG OD ORAL
     Route: 048
     Dates: start: 20031215
  2. DIAMICRON          (GLICLAZIDE) [Concomitant]
  3. FLORINEF [Concomitant]
  4. FORLAX (MACROGOL) [Concomitant]

REACTIONS (10)
  - ADRENOCORTICAL INSUFFICIENCY CHRONIC [None]
  - BLOOD ANTIDIURETIC HORMONE DECREASED [None]
  - BLOOD CHLORIDE DECREASED [None]
  - BLOOD GLUCOSE ABNORMAL [None]
  - BLOOD OSMOLARITY DECREASED [None]
  - BLOOD POTASSIUM DECREASED [None]
  - FALL [None]
  - HYPONATRAEMIA [None]
  - MALAISE [None]
  - SUBDURAL HAEMATOMA [None]
